FAERS Safety Report 10435617 (Version 6)
Quarter: 2016Q4

REPORT INFORMATION
  Report Type: Report from Study
  Country: DE (occurrence: DE)
  Receive Date: 20140908
  Receipt Date: 20161003
  Transmission Date: 20170206
  Serious: Yes (Hospitalization)
  Sender: FDA-Public Use
  Company Number: DE-ROCHE-1297932

PATIENT
  Age: 65 Year
  Sex: Male
  Weight: 100 kg

DRUGS (43)
  1. FOLIC ACID. [Concomitant]
     Active Substance: FOLIC ACID
     Indication: COLORECTAL CANCER
     Route: 065
     Dates: start: 20130128, end: 20130129
  2. FOLIC ACID. [Concomitant]
     Active Substance: FOLIC ACID
     Route: 065
     Dates: start: 20130211, end: 20140708
  3. AVASTIN [Suspect]
     Active Substance: BEVACIZUMAB
     Route: 042
     Dates: start: 20140512
  4. OXALIPLATIN. [Concomitant]
     Active Substance: OXALIPLATIN
     Indication: COLON CANCER METASTATIC
     Dosage: 12 CYCLES IN TOTAL?DATE OF LAST DOSE PRIOR TO SAE- 18/DEC/2013
     Route: 042
     Dates: start: 201301, end: 2013
  5. OXALIPLATIN. [Concomitant]
     Active Substance: OXALIPLATIN
     Route: 065
     Dates: start: 20130128, end: 20130211
  6. OXALIPLATIN. [Concomitant]
     Active Substance: OXALIPLATIN
     Route: 065
     Dates: start: 20130225, end: 20130715
  7. LOSARTAN. [Concomitant]
     Active Substance: LOSARTAN
     Indication: HYPERTENSION
     Route: 048
  8. LYRICA [Concomitant]
     Active Substance: PREGABALIN
     Indication: POLYNEUROPATHY
     Route: 048
  9. AVASTIN [Suspect]
     Active Substance: BEVACIZUMAB
     Dosage: DATE OF LAST DOSE PRIOR TO SAE- 18/DEC/2013
     Route: 042
     Dates: start: 20140120
  10. 5-FU [Concomitant]
     Active Substance: FLUOROURACIL
     Indication: COLORECTAL CANCER
     Route: 040
     Dates: start: 20130211, end: 20130924
  11. 5-FU [Concomitant]
     Active Substance: FLUOROURACIL
     Route: 042
     Dates: start: 20140804, end: 20140819
  12. 5-FU [Concomitant]
     Active Substance: FLUOROURACIL
     Route: 042
     Dates: start: 20140910, end: 20140911
  13. GLIMEPIRIDE. [Concomitant]
     Active Substance: GLIMEPIRIDE
     Indication: DIABETES MELLITUS
     Route: 048
  14. AVASTIN [Suspect]
     Active Substance: BEVACIZUMAB
     Route: 042
     Dates: start: 20140707
  15. AVASTIN [Suspect]
     Active Substance: BEVACIZUMAB
     Route: 042
     Dates: start: 20140902
  16. OXALIPLATIN. [Concomitant]
     Active Substance: OXALIPLATIN
     Route: 042
     Dates: start: 20140910, end: 20140911
  17. LEUCOVORIN. [Concomitant]
     Active Substance: LEUCOVORIN
     Dosage: ON D1 AND D2 OF EACH CYCLE?DATE OF LAST DOSE PRIOR TO SAE- 18/DEC/2013
     Route: 042
     Dates: start: 20131021
  18. 5-FU [Concomitant]
     Active Substance: FLUOROURACIL
     Indication: COLON CANCER METASTATIC
     Route: 040
     Dates: start: 20130128, end: 20130129
  19. KEVATRIL [Concomitant]
     Active Substance: GRANISETRON HYDROCHLORIDE
     Indication: PREMEDICATION
     Route: 042
  20. METFORMIN [Concomitant]
     Active Substance: METFORMIN HYDROCHLORIDE
     Indication: DIABETES MELLITUS
     Dosage: 500 MG
     Route: 065
  21. ONDANSETRON [Concomitant]
     Active Substance: ONDANSETRON
     Route: 065
     Dates: end: 201310
  22. AVASTIN [Suspect]
     Active Substance: BEVACIZUMAB
     Dosage: DATE OF LAST DOSE PRIOR TO SAE- 18/DEC/2013
     Route: 042
     Dates: start: 20131021
  23. LEUCOVORIN. [Concomitant]
     Active Substance: LEUCOVORIN
     Dosage: ON D1 AND D2 OF EACH CYCLE?DATE OF LAST DOSE PRIOR TO SAE- 18/DEC/2013
     Route: 042
     Dates: start: 20140120
  24. 5-FU [Concomitant]
     Active Substance: FLUOROURACIL
     Route: 042
     Dates: start: 20131104, end: 20131119
  25. METFORMIN [Concomitant]
     Active Substance: METFORMIN HYDROCHLORIDE
     Route: 048
  26. 5-FU [Concomitant]
     Active Substance: FLUOROURACIL
     Route: 040
     Dates: start: 20140512, end: 20140708
  27. 5-FU [Concomitant]
     Active Substance: FLUOROURACIL
     Route: 042
     Dates: start: 20130211, end: 20130924
  28. AVASTIN [Suspect]
     Active Substance: BEVACIZUMAB
     Indication: COLON CANCER METASTATIC
     Dosage: 12 CYCLES IN TOTAL
     Route: 042
     Dates: start: 20130128
  29. 5-FU [Concomitant]
     Active Substance: FLUOROURACIL
     Route: 042
     Dates: start: 20140224, end: 20140415
  30. LOSARTAN. [Concomitant]
     Active Substance: LOSARTAN
     Route: 048
  31. AVASTIN [Suspect]
     Active Substance: BEVACIZUMAB
     Route: 042
     Dates: end: 20130923
  32. AVASTIN [Suspect]
     Active Substance: BEVACIZUMAB
     Route: 065
     Dates: start: 20140804
  33. OXALIPLATIN. [Concomitant]
     Active Substance: OXALIPLATIN
     Route: 042
     Dates: start: 20140804, end: 20140902
  34. LEUCOVORIN. [Concomitant]
     Active Substance: LEUCOVORIN
     Indication: COLON CANCER METASTATIC
     Dosage: 12 CYCLES IN TOTAL
     Route: 042
     Dates: start: 20130128, end: 20130129
  35. LEUCOVORIN. [Concomitant]
     Active Substance: LEUCOVORIN
     Dosage: ON D1 AND D2 OF EACH CYCLE, TOTAL 12 CYCLES
     Route: 042
     Dates: end: 20140911
  36. 5-FU [Concomitant]
     Active Substance: FLUOROURACIL
     Route: 040
     Dates: start: 20140804, end: 20140911
  37. 5-FU [Concomitant]
     Active Substance: FLUOROURACIL
     Route: 042
     Dates: start: 20131216, end: 20140121
  38. MIRTAZAPIN [Concomitant]
     Active Substance: MIRTAZAPINE
     Route: 065
     Dates: end: 201310
  39. LEUCOVORIN. [Concomitant]
     Active Substance: LEUCOVORIN
     Dosage: ON D1 AND D2 OF EACH CYCLE
     Route: 042
     Dates: start: 20130211, end: 20130924
  40. 5-FU [Concomitant]
     Active Substance: FLUOROURACIL
     Route: 040
     Dates: start: 20131104, end: 20140415
  41. 5-FU [Concomitant]
     Active Substance: FLUOROURACIL
     Route: 042
     Dates: start: 20130128, end: 20130129
  42. 5-FU [Concomitant]
     Active Substance: FLUOROURACIL
     Route: 042
     Dates: start: 20140512, end: 20140708
  43. FORTECORTIN [Concomitant]
     Active Substance: DEXAMETHASONE
     Indication: PREMEDICATION
     Route: 042

REACTIONS (10)
  - Hyperhidrosis [Recovered/Resolved]
  - Dysarthria [Recovered/Resolved]
  - Febrile infection [Recovered/Resolved]
  - Headache [Recovered/Resolved]
  - Urinary tract infection [Recovered/Resolved]
  - Nausea [Recovered/Resolved]
  - Device related infection [Not Recovered/Not Resolved]
  - Rhinitis [Recovered/Resolved]
  - Pyrexia [Recovered/Resolved]
  - Dyspnoea [Recovered/Resolved]

NARRATIVE: CASE EVENT DATE: 20131004
